FAERS Safety Report 9352704 (Version 4)
Quarter: 2013Q3

REPORT INFORMATION
  Report Type: Report from Study
  Country: JP (occurrence: JP)
  Receive Date: 20130618
  Receipt Date: 20130911
  Transmission Date: 20140515
  Serious: Yes (Death)
  Sender: FDA-Public Use
  Company Number: JP-PFIZER INC-2013177681

PATIENT
  Age: 67 Year
  Sex: Female

DRUGS (6)
  1. CRIZOTINIB [Suspect]
     Indication: NON-SMALL CELL LUNG CANCER
     Dosage: 250 MG, 2X/DAY
     Route: 048
     Dates: start: 20121119
  2. FAMOTIDINE [Concomitant]
     Dosage: 20 MG, 2X/DAY
     Route: 048
     Dates: end: 20130131
  3. MAGNESIUM OXIDE [Concomitant]
     Dosage: 500 MG, 3X/DAY
     Route: 048
     Dates: start: 20121126
  4. PRIMPERAN [Concomitant]
     Dosage: 5 MG, 3X/DAY
     Dates: start: 20121126, end: 20130131
  5. ZYPREXA [Concomitant]
     Dosage: 5 MG, AS NEEDED
     Route: 048
     Dates: start: 20121126, end: 20130131
  6. HIRUDOID [Concomitant]
     Dosage: AS NEEDED
     Route: 061
     Dates: start: 20121126, end: 20130131

REACTIONS (2)
  - Disease progression [Fatal]
  - Non-small cell lung cancer [Fatal]
